FAERS Safety Report 4983093-2 (Version None)
Quarter: 2006Q2

REPORT INFORMATION
  Report Type: 
  Country: None (occurrence: None)
  Receive Date: 20060419
  Receipt Date: 20060407
  Transmission Date: 20061013
  Serious: Yes (Hospitalization)
  Sender: FDA-Public Use
  Company Number: 200610330BFR

PATIENT
  Age: 63 Year
  Sex: Male
  Weight: 63 kg

DRUGS (15)
  1. SORAFENIB [Suspect]
     Indication: MESOTHELIOMA
     Dosage: SEE IMAGE, ORAL
     Route: 048
     Dates: start: 20060224, end: 20060307
  2. SORAFENIB [Suspect]
     Indication: MESOTHELIOMA
     Dosage: SEE IMAGE, ORAL
     Route: 048
     Dates: start: 20060316
  3. DACARBAZINE [Suspect]
     Indication: MESOTHELIOMA
     Dosage: 1000 MG/M2, TOTAL DAILY, INTRA
     Dates: start: 20060223
  4. DACARBAZINE [Suspect]
     Indication: MESOTHELIOMA
     Dosage: 1000 MG/M2, TOTAL DAILY, INTRA
     Dates: start: 20060316
  5. DACARBAZINE [Suspect]
     Indication: MESOTHELIOMA
     Dosage: 1000 MG/M2, TOTAL DAILY, INTRA
     Dates: start: 20060406
  6. SOLUPRED [Concomitant]
  7. NEURONTIN [Concomitant]
  8. EFFERALGAN [Concomitant]
  9. TRAMADOL HCL [Concomitant]
  10. ZOPHREN [Concomitant]
  11. PRIMPERAN TAB [Concomitant]
  12. IMODIUM [Concomitant]
  13. DEXERYL [Concomitant]
  14. DIPROSONE [Concomitant]
  15. RIVOTRIL [Concomitant]

REACTIONS (8)
  - ARRHYTHMIA [None]
  - CHEST PAIN [None]
  - DRUG TOXICITY [None]
  - NAUSEA [None]
  - PHYSICAL EXAMINATION ABNORMAL [None]
  - SUPRAVENTRICULAR TACHYARRHYTHMIA [None]
  - TACHYCARDIA [None]
  - VOMITING [None]
